FAERS Safety Report 7600040-5 (Version None)
Quarter: 2011Q3

REPORT INFORMATION
  Report Type: 
  Country: None (occurrence: None)
  Receive Date: 20110706
  Receipt Date: 20110706
  Transmission Date: 20111222
  Serious: No
  Sender: FDA-Public Use
  Company Number: None

PATIENT

DRUGS (1)
  1. COLCRYS [Suspect]

REACTIONS (5)
  - DIARRHOEA [None]
  - FAMILIAL MEDITERRANEAN FEVER [None]
  - ECONOMIC PROBLEM [None]
  - THERAPEUTIC RESPONSE DECREASED [None]
  - PRODUCT SUBSTITUTION ISSUE [None]
